FAERS Safety Report 6464322-5 (Version None)
Quarter: 2009Q4

REPORT INFORMATION
  Report Type: 
  Country: None (occurrence: None)
  Receive Date: 20091201
  Receipt Date: 20091125
  Transmission Date: 20100525
  Serious: Yes (Hospitalization, Other)
  Sender: FDA-Public Use
  Company Number: SK-ROXANE LABORATORIES, INC.-2009-RO-01195RO

PATIENT
  Age: 85 Year
  Sex: Female

DRUGS (6)
  1. PREDNISONE TAB [Suspect]
     Indication: PEMPHIGOID
     Dosage: 20 MG
  2. PREDNISONE TAB [Suspect]
     Dosage: 60 MG
  3. HYDROCHLOROTHIAZIDE [Suspect]
  4. LACIPIL [Suspect]
  5. SALICYLIC ACID IN VASELINE [Concomitant]
     Indication: ACARODERMATITIS
     Route: 061
  6. SULFUR [Concomitant]
     Indication: ACARODERMATITIS
     Route: 061

REACTIONS (3)
  - ACARODERMATITIS [None]
  - DRUG HYPERSENSITIVITY [None]
  - MYOCARDIAL ISCHAEMIA [None]
